FAERS Safety Report 21132289 (Version 1)
Quarter: 2022Q3

REPORT INFORMATION
  Report Type: Spontaneous
  Country: US (occurrence: US)
  Receive Date: 20220726
  Receipt Date: 20220726
  Transmission Date: 20221027
  Serious: No
  Sender: FDA-Public Use
  Company Number: US-BRISTOL-MYERS SQUIBB COMPANY-2022-079249

PATIENT
  Sex: Female
  Weight: 75.8 kg

DRUGS (1)
  1. ORENCIA [Suspect]
     Active Substance: ABATACEPT
     Indication: Arthritis
     Dosage: DOSE : 125MG;     FREQ : EVERY WEEK
     Route: 058
     Dates: start: 20201027

REACTIONS (1)
  - Product storage error [Unknown]
